FAERS Safety Report 7918703-0 (Version None)
Quarter: 2011Q4

REPORT INFORMATION
  Report Type: 
  Country: None (occurrence: None)
  Receive Date: 20111116
  Receipt Date: 20111108
  Transmission Date: 20120403
  Serious: Yes (Hospitalization)
  Sender: FDA-Public Use
  Company Number: US-US-EMD SERONO, INC.-7007701

PATIENT
  Sex: Female
  Weight: 82 kg

DRUGS (4)
  1. REBIF [Suspect]
     Indication: MULTIPLE SCLEROSIS
     Route: 058
     Dates: start: 20091202
  2. IBUPROFEN [Concomitant]
     Indication: PREMEDICATION
  3. SYNTHROID [Concomitant]
     Indication: THYROID DISORDER
  4. DILANTIN [Concomitant]
     Indication: CONVULSION

REACTIONS (1)
  - PNEUMONIA [None]
